FAERS Safety Report 6906619-8 (Version None)
Quarter: 2010Q3

REPORT INFORMATION
  Report Type: 
  Country: None (occurrence: None)
  Receive Date: 20100708
  Receipt Date: 20091104
  Transmission Date: 20110219
  Serious: Yes (Other)
  Sender: FDA-Public Use
  Company Number: 2008037264

PATIENT
  Age: 49 Year
  Sex: Female
  Weight: 54.4 kg

DRUGS (6)
  1. CHANTIX [Suspect]
     Dates: start: 20071123
  2. VALIUM [Concomitant]
  3. XANAX [Concomitant]
  4. ALLOPURINOL [Concomitant]
  5. ASPIRIN [Concomitant]
  6. LISINOPRIL [Concomitant]

REACTIONS (7)
  - DEPRESSION [None]
  - DYSGEUSIA [None]
  - FEELING JITTERY [None]
  - MALAISE [None]
  - NAUSEA [None]
  - NERVOUSNESS [None]
  - SUICIDAL IDEATION [None]
